FAERS Safety Report 24645363 (Version 3)
Quarter: 2024Q4

REPORT INFORMATION
  Report Type: Spontaneous
  Country: IT (occurrence: IT)
  Receive Date: 20241121
  Receipt Date: 20241219
  Transmission Date: 20250115
  Serious: Yes (Other)
  Sender: CELLTRION
  Company Number: IT-ROCHE-3564760

PATIENT

DRUGS (24)
  1. RITUXIMAB [Suspect]
     Active Substance: RITUXIMAB
     Indication: Diffuse large B-cell lymphoma refractory
     Dosage: UNK
     Route: 065
  2. RITUXIMAB [Suspect]
     Active Substance: RITUXIMAB
     Dosage: ONE COURSE OF R-CHOP (RITUXIMAB, CYCLOPHOSPHAMIDE, VINCRISTINE, DOXORUBICIN AND PREDNISONE)
  3. RITUXIMAB [Suspect]
     Active Substance: RITUXIMAB
     Dosage: FIVE COURSES OF R-DA-EPOCH (RITUXIMAB PLUS DOSE-ADJUSTED ETOPOSIDE, PREDNISONE, VINCRISTINE, CYCLOPH
  4. RITUXIMAB [Suspect]
     Active Substance: RITUXIMAB
     Dosage: TWO CYCLES OF R-DHAOX (RITUXIMAB, DEXAMETHASONE, CYTARABINE
  5. RITUXIMAB [Suspect]
     Active Substance: RITUXIMAB
     Dosage: TWO CYCLES OF RITUXIMAB-POLATUZUMAB AND BENDAMUSTINE (BRIDGING THERAPY)
  6. OBINUTUZUMAB [Suspect]
     Active Substance: OBINUTUZUMAB
     Indication: Diffuse large B-cell lymphoma refractory
     Dosage: 1000 MG
     Route: 065
  7. CYCLOPHOSPHAMIDE [Suspect]
     Active Substance: CYCLOPHOSPHAMIDE
     Indication: Diffuse large B-cell lymphoma refractory
     Dosage: UNK
     Route: 042
     Dates: start: 202208
  8. CYCLOPHOSPHAMIDE [Suspect]
     Active Substance: CYCLOPHOSPHAMIDE
     Dosage: ONE COURSE OF R-CHOP
     Route: 065
  9. CYCLOPHOSPHAMIDE [Suspect]
     Active Substance: CYCLOPHOSPHAMIDE
     Dosage: FIVE COURSES OF R-DA-EPOCH
  10. VINCRISTINE [Suspect]
     Active Substance: VINCRISTINE
     Indication: Diffuse large B-cell lymphoma refractory
     Dosage: ONE COURSE OF R-CHOP
     Route: 065
  11. VINCRISTINE [Suspect]
     Active Substance: VINCRISTINE
     Dosage: FIVE COURSES OF R-DA-EPOCH
  12. DOXORUBICIN [Suspect]
     Active Substance: DOXORUBICIN
     Indication: Diffuse large B-cell lymphoma refractory
     Dosage: ONE COURSE OF R-CHOP
     Route: 065
  13. DOXORUBICIN [Suspect]
     Active Substance: DOXORUBICIN
     Dosage: FIVE COURSES OF R-DA-EPOCH
  14. PREDNISONE [Suspect]
     Active Substance: PREDNISONE
     Indication: Diffuse large B-cell lymphoma refractory
     Dosage: ONE COURSE OF R-CHOP
     Route: 065
  15. PREDNISONE [Suspect]
     Active Substance: PREDNISONE
     Dosage: FIVE COURSES OF R-DA-EPOCH
     Route: 065
  16. ETOPOSIDE [Suspect]
     Active Substance: ETOPOSIDE
     Indication: Diffuse large B-cell lymphoma refractory
     Dosage: FIVE COURSES OF R-DA-EPOCH, DOSE ADJUSTED
     Route: 065
  17. DEXAMETHASONE [Suspect]
     Active Substance: DEXAMETHASONE
     Indication: Diffuse large B-cell lymphoma refractory
     Dosage: TWO CYCLES OF R-DHAOX
     Route: 065
  18. DEXAMETHASONE [Suspect]
     Active Substance: DEXAMETHASONE
     Dosage: BRIDGING THERAPY
  19. CYTARABINE [Suspect]
     Active Substance: CYTARABINE
     Indication: Diffuse large B-cell lymphoma refractory
     Dosage: TWO CYCLES OF R-DHAOX
     Route: 065
  20. OXALIPLATIN [Suspect]
     Active Substance: OXALIPLATIN
     Indication: Diffuse large B-cell lymphoma refractory
     Dosage: TWO CYCLES OF R-DHAOX
     Route: 065
  21. POLATUZUMAB VEDOTIN [Concomitant]
     Active Substance: POLATUZUMAB VEDOTIN
     Indication: Diffuse large B-cell lymphoma refractory
     Dosage: TWO CYCLES OF RITUXIMAB-POLATUZUMAB AND BENDAMUSTINE (BRIDGING THERAPY)
  22. BENDAMUSTINE [Concomitant]
     Active Substance: BENDAMUSTINE
     Indication: Diffuse large B-cell lymphoma refractory
     Dosage: TWO CYCLES OF RITUXIMAB-POLATUZUMAB AND BENDAMUSTINE (BRIDGING THERAPY)
  23. TISAGENLECLEUCEL [Concomitant]
     Active Substance: TISAGENLECLEUCEL
     Indication: Diffuse large B-cell lymphoma refractory
     Dosage: UNK
  24. FLUDARABINE [Concomitant]
     Active Substance: FLUDARABINE PHOSPHATE
     Indication: Diffuse large B-cell lymphoma refractory
     Dosage: UNK
     Dates: start: 202208

REACTIONS (6)
  - Disease progression [Recovering/Resolving]
  - Platelet count decreased [Unknown]
  - Neutropenia [Unknown]
  - Product use issue [Unknown]
  - Product use issue [Unknown]
  - Product use issue [Unknown]
